FAERS Safety Report 15580731 (Version 1)
Quarter: 2018Q4

REPORT INFORMATION
  Report Type: Spontaneous
  Country: US (occurrence: US)
  Receive Date: 20181104
  Receipt Date: 20181104
  Transmission Date: 20190205
  Serious: Yes (Other)
  Sender: FDA-Public Use
  Company Number: None

PATIENT
  Age: 28 Year
  Sex: Male
  Weight: 90 kg

DRUGS (7)
  1. VYVANSE [Concomitant]
     Active Substance: LISDEXAMFETAMINE DIMESYLATE
  2. LAMICTAL [Concomitant]
     Active Substance: LAMOTRIGINE
  3. TRILEPTAL [Concomitant]
     Active Substance: OXCARBAZEPINE
  4. LEXAPRO [Concomitant]
     Active Substance: ESCITALOPRAM OXALATE
  5. METOPROLOL. [Concomitant]
     Active Substance: METOPROLOL
  6. ZITHROMAX [Suspect]
     Active Substance: AZITHROMYCIN DIHYDRATE
     Indication: BRONCHITIS
     Dosage: ?          QUANTITY:1 TABLET(S);?
  7. WELLBUTRIN [Concomitant]
     Active Substance: BUPROPION HYDROCHLORIDE

REACTIONS (3)
  - Panic attack [None]
  - Anxiety [None]
  - Hypotension [None]

NARRATIVE: CASE EVENT DATE: 20160701
